FAERS Safety Report 12848184 (Version 1)
Quarter: 2016Q4

REPORT INFORMATION
  Report Type: Spontaneous
  Country: US (occurrence: US)
  Receive Date: 20161014
  Receipt Date: 20161014
  Transmission Date: 20170207
  Serious: No
  Sender: FDA-Public Use
  Company Number: US-JNJFOC-20160714715

PATIENT
  Age: 75 Year
  Sex: Female

DRUGS (4)
  1. TYLENOL 8 HR ARTHRITIS PAIN [Suspect]
     Active Substance: ACETAMINOPHEN
     Indication: ABDOMINAL PAIN UPPER
     Dosage: 3-4 DOSES
     Route: 048
     Dates: start: 20160711
  2. TYLENOL EXTRA STRENGTH [Suspect]
     Active Substance: ACETAMINOPHEN
     Indication: ABDOMINAL PAIN UPPER
     Route: 048
  3. TYLENOL EXTRA STRENGTH [Suspect]
     Active Substance: ACETAMINOPHEN
     Indication: HEADACHE
     Route: 048
  4. TYLENOL 8 HR ARTHRITIS PAIN [Suspect]
     Active Substance: ACETAMINOPHEN
     Indication: HEADACHE
     Dosage: 3-4 DOSES
     Route: 048
     Dates: start: 20160711

REACTIONS (6)
  - Product use issue [Unknown]
  - Product packaging issue [Unknown]
  - Drug administration error [Unknown]
  - Abdominal pain upper [Unknown]
  - Eructation [Unknown]
  - Off label use [Unknown]

NARRATIVE: CASE EVENT DATE: 20160713
